FAERS Safety Report 7519163-4 (Version None)
Quarter: 2011Q2

REPORT INFORMATION
  Report Type: 
  Country: None (occurrence: None)
  Receive Date: 20110602
  Receipt Date: 20110523
  Transmission Date: 20111010
  Serious: Yes (Hospitalization, Other)
  Sender: FDA-Public Use
  Company Number: US-ROCHE-778937

PATIENT
  Age: 51 Year
  Sex: Female
  Weight: 69.9 kg

DRUGS (9)
  1. GABAPENTIN [Suspect]
     Route: 065
     Dates: start: 20090101, end: 20100101
  2. TRAMADOL HCL [Concomitant]
     Dates: start: 20090101
  3. DIAZEPAM [Suspect]
     Dosage: FREQUENCY: AS NEEDED
     Route: 048
     Dates: start: 20091101, end: 20110502
  4. GABAPENTIN [Suspect]
     Dosage: INCREASED DOSAGE
     Route: 065
     Dates: start: 20100101, end: 20100701
  5. SERTRALINE HYDROCHLORIDE [Suspect]
     Dosage: FORM: FILM-COATED TABLET
     Route: 048
     Dates: start: 20091101
  6. HYDROCODONE BITARTRATE [Concomitant]
     Indication: PAIN
     Dosage: 5/3.25 MG
     Dates: start: 20090101
  7. ADRENALIN IN OIL INJ [Suspect]
     Dosage: FORM: SOLUTION, FREQUENCY TWO SHOTS
     Route: 065
     Dates: start: 20091101, end: 20091101
  8. SERTRALINE HYDROCHLORIDE [Suspect]
     Route: 048
     Dates: start: 20110201, end: 20110403
  9. FLEXERIL [Concomitant]
     Dosage: REQUENCY: AS NEEDED
     Dates: start: 20090101

REACTIONS (9)
  - CHOKING SENSATION [None]
  - CARPAL TUNNEL SYNDROME [None]
  - RESPIRATORY ARREST [None]
  - HALLUCINATION [None]
  - ANXIETY [None]
  - SKIN DISCOLOURATION [None]
  - DEPRESSED MOOD [None]
  - PALPITATIONS [None]
  - HEAD INJURY [None]
